FAERS Safety Report 7622188-1 (Version None)
Quarter: 2011Q3

REPORT INFORMATION
  Report Type: 
  Country: None (occurrence: None)
  Receive Date: 20110720
  Receipt Date: 20110516
  Transmission Date: 20111222
  Serious: Yes (Other)
  Sender: FDA-Public Use
  Company Number: US-BAYER-2011-038223

PATIENT
  Age: 46 Year
  Sex: Female

DRUGS (4)
  1. SOY ISOFLAVONES [Concomitant]
     Dosage: UNK
     Dates: start: 20090101, end: 20110308
  2. DONG QUAI COMPLEX [Concomitant]
     Dosage: UNK
     Dates: start: 20090101, end: 20110308
  3. VITEX CHASTE TREE [Concomitant]
     Dosage: UNK
     Dates: start: 20090101, end: 20110308
  4. BEYAZ [Suspect]
     Indication: MENOPAUSE
     Dosage: UNK
     Dates: start: 20110101, end: 20110308

REACTIONS (6)
  - DYSPNOEA [None]
  - WHEEZING [None]
  - PAIN IN EXTREMITY [None]
  - PULMONARY EMBOLISM [None]
  - PLEURAL EFFUSION [None]
  - INTESTINAL OBSTRUCTION [None]
